FAERS Safety Report 4683686-6 (Version None)
Quarter: 2005Q2

REPORT INFORMATION
  Report Type: 
  Country: None (occurrence: None)
  Receive Date: 20050607
  Receipt Date: 20050601
  Transmission Date: 20051028
  Serious: Yes (Hospitalization)
  Sender: FDA-Public Use
  Company Number: 200511429EU

PATIENT
  Age: 50 Year
  Sex: Female

DRUGS (5)
  1. RILUZOLE [Suspect]
     Indication: HUNTINGTON'S CHOREA
     Route: 048
     Dates: start: 20050111
  2. PLACEBO [Suspect]
     Indication: HUNTINGTON'S CHOREA
     Route: 048
     Dates: start: 20010328, end: 20050111
  3. TIAPRIDE [Concomitant]
     Indication: HUNTINGTON'S CHOREA
     Route: 048
     Dates: start: 20050228
  4. MIRTAZAPINE [Concomitant]
     Indication: ANTIDEPRESSANT THERAPY
     Route: 048
  5. EFFORTIL-DEPOT [Concomitant]
     Indication: HYPERTENSION
     Route: 048
     Dates: start: 19950101

REACTIONS (4)
  - APATHY [None]
  - DEPRESSION [None]
  - DISTURBANCE IN ATTENTION [None]
  - PERSONALITY CHANGE [None]
